FAERS Safety Report 10366173 (Version 2)
Quarter: 2014Q3

REPORT INFORMATION
  Report Type: Spontaneous
  Country: BR (occurrence: BR)
  Receive Date: 20140806
  Receipt Date: 20140806
  Transmission Date: 20150326
  Serious: Yes (Other)
  Sender: FDA-Public Use
  Company Number: BR-ELI_LILLY_AND_COMPANY-BR201407003057

PATIENT
  Age: 77 Year
  Sex: Female

DRUGS (9)
  1. CISPLATIN. [Suspect]
     Active Substance: CISPLATIN
     Dosage: 40 MG, OTHER
     Route: 065
     Dates: start: 20110216, end: 20120130
  2. GEMCITABINE HYDROCHLORIDE. [Suspect]
     Active Substance: GEMCITABINE HYDROCHLORIDE
     Indication: BREAST CANCER
     Dosage: 1800 MG, UNKNOWN
     Route: 065
     Dates: start: 20120215, end: 20120430
  3. PACLITAXEL. [Concomitant]
     Active Substance: PACLITAXEL
     Dosage: 120 MG, OTHER
     Route: 065
     Dates: start: 20101019, end: 20110215
  4. EPIRUBICIN [Concomitant]
     Active Substance: EPIRUBICIN
     Indication: BREAST CANCER
     Dosage: 70 MG, OTHER
     Route: 065
     Dates: start: 20110216, end: 20120130
  5. GEMCITABINE HYDROCHLORIDE. [Suspect]
     Active Substance: GEMCITABINE HYDROCHLORIDE
     Dosage: 1800 MG/M2, OTHER
     Route: 065
     Dates: start: 20120501, end: 20120609
  6. BEVACIZUMAB [Concomitant]
     Active Substance: BEVACIZUMAB
     Indication: BREAST CANCER
  7. VINORELBINE [Concomitant]
     Active Substance: VINORELBINE\VINORELBINE TARTRATE
     Indication: BREAST CANCER
     Dosage: UNK, UNKNOWN
  8. CISPLATIN. [Suspect]
     Active Substance: CISPLATIN
     Indication: BREAST CANCER
     Dosage: 50 MG, UNKNOWN
     Route: 065
     Dates: start: 20120215, end: 20120430
  9. PACLITAXEL. [Concomitant]
     Active Substance: PACLITAXEL
     Indication: BREAST CANCER
     Dosage: 120 MG, OTHER
     Route: 065
     Dates: start: 20110216, end: 20120130

REACTIONS (2)
  - Pleural effusion [Unknown]
  - Renal impairment [Unknown]
